FAERS Safety Report 24176319 (Version 1)
Quarter: 2024Q3

REPORT INFORMATION
  Report Type: Spontaneous
  Country: FR (occurrence: FR)
  Receive Date: 20240806
  Receipt Date: 20240806
  Transmission Date: 20241016
  Serious: Yes (Hospitalization, Other)
  Sender: AUROBINDO
  Company Number: FR-EMA-20131129-raevhumanwt-160530953

PATIENT
  Age: 62 Year
  Sex: Male

DRUGS (3)
  1. AMOXICILLIN [Suspect]
     Active Substance: AMOXICILLIN
     Indication: Odynophagia
     Dosage: UNK
     Route: 065
  2. ALLOPURINOL [Suspect]
     Active Substance: ALLOPURINOL
     Indication: Hyperuricaemia
     Dosage: UNK
     Route: 065
  3. ACETAMINOPHEN [Concomitant]
     Active Substance: ACETAMINOPHEN
     Indication: Odynophagia
     Dosage: UNK
     Route: 065

REACTIONS (37)
  - Leukocytosis [Unknown]
  - Hepatic cytolysis [Unknown]
  - Haemophagocytic lymphohistiocytosis [Unknown]
  - Pyrexia [Unknown]
  - Lymphadenopathy [Unknown]
  - Lymphocyte morphology abnormal [Unknown]
  - Goitre [Unknown]
  - Anaemia [Unknown]
  - Drug reaction with eosinophilia and systemic symptoms [Unknown]
  - Cholestasis [Unknown]
  - Tri-iodothyronine increased [Unknown]
  - Pharyngitis [Unknown]
  - Pruritus [Unknown]
  - Blood lactate dehydrogenase increased [Unknown]
  - Rash [Unknown]
  - Blood triglycerides increased [Unknown]
  - Face oedema [Unknown]
  - Purpura [Unknown]
  - Liver disorder [Unknown]
  - Epstein-Barr virus infection reactivation [Recovered/Resolved]
  - Renal impairment [Unknown]
  - Serum ferritin increased [Unknown]
  - Mononucleosis syndrome [Unknown]
  - Rash maculo-papular [Unknown]
  - Transaminases increased [Unknown]
  - Thyroxine free increased [Unknown]
  - Eosinophilia [Unknown]
  - Graves^ disease [Unknown]
  - Rash morbilliform [Unknown]
  - Human herpesvirus 7 infection [Unknown]
  - Hyperthyroidism [Unknown]
  - Tachycardia [Unknown]
  - Pancytopenia [Unknown]
  - Thrombocytopenia [Unknown]
  - Dermatitis exfoliative generalised [Unknown]
  - Neutropenia [Unknown]
  - Human herpes virus 6 serology positive [Unknown]
